FAERS Safety Report 7830062-0 (Version None)
Quarter: 2011Q4

REPORT INFORMATION
  Report Type: 
  Country: None (occurrence: None)
  Receive Date: 20111018
  Receipt Date: 20111004
  Transmission Date: 20120403
  Serious: Yes (Other)
  Sender: FDA-Public Use
  Company Number: 2011P1006073

PATIENT
  Age: 77 Year
  Sex: Female
  Weight: 79.3795 kg

DRUGS (6)
  1. PRINIVIL [Concomitant]
  2. LAMOTRIGINE [Suspect]
     Indication: BIPOLAR DISORDER
     Dosage: 150;75  MG,QD,PO
     Route: 048
     Dates: start: 20080101, end: 20100101
  3. LAMOTRIGINE [Suspect]
     Indication: DEPRESSION
     Dosage: 150;75  MG,QD,PO
     Route: 048
     Dates: start: 20080101, end: 20100101
  4. LAMOTRIGINE [Suspect]
     Indication: BIPOLAR DISORDER
     Dosage: 150;75  MG,QD,PO
     Route: 048
     Dates: start: 20100101
  5. LAMOTRIGINE [Suspect]
     Indication: DEPRESSION
     Dosage: 150;75  MG,QD,PO
     Route: 048
     Dates: start: 20100101
  6. SYNTHROID [Concomitant]

REACTIONS (3)
  - ANAL CANCER [None]
  - HAEMATOCHEZIA [None]
  - DYSPEPSIA [None]
